FAERS Safety Report 7117651-6 (Version None)
Quarter: 2010Q4

REPORT INFORMATION
  Report Type: 
  Country: None (occurrence: None)
  Receive Date: 20101123
  Receipt Date: 20101112
  Transmission Date: 20110411
  Serious: Yes (Other)
  Sender: FDA-Public Use
  Company Number: US-AMGEN-USASP2010004594

PATIENT

DRUGS (9)
  1. PROLIA [Suspect]
     Indication: OSTEOPOROSIS POSTMENOPAUSAL
     Dosage: 60 MG, Q6MO
     Dates: start: 20101025, end: 20101025
  2. ARICEPT                            /01318901/ [Concomitant]
  3. ASPIRIN [Concomitant]
  4. CENTRUM SILVER                     /01292501/ [Concomitant]
  5. LEVOXYL [Concomitant]
  6. NIACIN [Concomitant]
  7. OMEGA 3                            /00931501/ [Concomitant]
  8. TOPROL-XL [Concomitant]
  9. VYTORIN [Concomitant]

REACTIONS (2)
  - DIZZINESS [None]
  - LOSS OF CONSCIOUSNESS [None]
